FAERS Safety Report 7131183-0 (Version None)
Quarter: 2010Q4

REPORT INFORMATION
  Report Type: 
  Country: None (occurrence: None)
  Receive Date: 20101124
  Receipt Date: 20101124
  Transmission Date: 20110411
  Serious: No
  Sender: FDA-Public Use
  Company Number: None

PATIENT
  Age: 49 Year
  Sex: Female
  Weight: 72.1219 kg

DRUGS (3)
  1. SUPARTZ SODIUM HYALURONATE 25MG SMITH + NEPHEW [Suspect]
     Indication: ARTHRALGIA
     Dosage: 25MG / 2.5 MIL SYRINGE 1 WEEKLY FOR 3 WKS INJ IN JOINT
     Dates: start: 20101025
  2. SUPARTZ SODIUM HYALURONATE 25MG SMITH + NEPHEW [Suspect]
     Indication: ARTHRALGIA
     Dosage: 25MG / 2.5 MIL SYRINGE 1 WEEKLY FOR 3 WKS INJ IN JOINT
     Dates: start: 20101101
  3. SUPARTZ SODIUM HYALURONATE 25MG SMITH + NEPHEW [Suspect]
     Indication: ARTHRALGIA
     Dosage: 25MG / 2.5 MIL SYRINGE 1 WEEKLY FOR 3 WKS INJ IN JOINT
     Dates: start: 20101110

REACTIONS (3)
  - BLOOD GLUCOSE DECREASED [None]
  - DRUG INEFFECTIVE [None]
  - THERAPEUTIC RESPONSE UNEXPECTED [None]
